FAERS Safety Report 10429442 (Version 1)
Quarter: 2014Q3

REPORT INFORMATION
  Report Type: Spontaneous
  Country: US (occurrence: None)
  Receive Date: 20140902
  Receipt Date: 20140902
  Transmission Date: 20150326
  Serious: Yes (Hospitalization)
  Sender: FDA-Public Use
  Company Number: None

PATIENT
  Age: 39 Year
  Sex: Male

DRUGS (9)
  1. MUPIROCIN. [Concomitant]
     Active Substance: MUPIROCIN
  2. CRACK COCAINE [Suspect]
     Active Substance: COCAINE
  3. METHADONE [Concomitant]
     Active Substance: METHADONE HYDROCHLORIDE
  4. METHADONE [Suspect]
     Active Substance: METHADONE HYDROCHLORIDE
  5. KETOCONAZOLE. [Concomitant]
     Active Substance: KETOCONAZOLE
  6. KLONOPIN [Suspect]
     Active Substance: CLONAZEPAM
     Route: 048
     Dates: end: 20140729
  7. XANAX [Suspect]
     Active Substance: ALPRAZOLAM
  8. CLONIDINE. [Suspect]
     Active Substance: CLONIDINE
  9. MULTIVITAMIN [Concomitant]
     Active Substance: VITAMINS

REACTIONS (3)
  - Suicide attempt [None]
  - Overdose [None]
  - Substance abuse [None]

NARRATIVE: CASE EVENT DATE: 20140729
